FAERS Safety Report 13639833 (Version 1)
Quarter: 2017Q2

REPORT INFORMATION
  Report Type: Spontaneous
  Country: US (occurrence: US)
  Receive Date: 20170609
  Receipt Date: 20170609
  Transmission Date: 20170830
  Serious: No
  Sender: FDA-Public Use
  Company Number: US-ROCHE-781920

PATIENT
  Sex: Female

DRUGS (3)
  1. KLONOPIN [Suspect]
     Active Substance: CLONAZEPAM
     Route: 048
  2. KLONOPIN [Suspect]
     Active Substance: CLONAZEPAM
     Route: 048
  3. KLONOPIN [Suspect]
     Active Substance: CLONAZEPAM
     Indication: PANIC DISORDER
     Route: 048

REACTIONS (7)
  - Ill-defined disorder [Unknown]
  - Abdominal pain upper [Unknown]
  - Pain [Unknown]
  - Constipation [Unknown]
  - Product quality issue [Unknown]
  - Flatulence [Unknown]
  - Drug ineffective [Unknown]
